FAERS Safety Report 5199845-2 (Version None)
Quarter: 2007Q1

REPORT INFORMATION
  Report Type: 
  Country: None (occurrence: None)
  Receive Date: 20070105
  Receipt Date: 20061222
  Transmission Date: 20070707
  Serious: Yes (Hospitalization, Other)
  Sender: FDA-Public Use
  Company Number: PHEH2006US13650

PATIENT
  Age: 68 Year
  Sex: Male
  Weight: 242 kg

DRUGS (20)
  1. GLEEVEC [Suspect]
     Indication: GASTROINTESTINAL STROMAL TUMOUR
     Dosage: 400 MG, QD
     Route: 048
     Dates: start: 20050913, end: 20060501
  2. GLEEVEC [Suspect]
     Dosage: 800 MG, QD
     Dates: start: 20061127
  3. SUTENT [Suspect]
     Indication: GASTROINTESTINAL STROMAL TUMOUR
     Dosage: 50 MG, Q0D X 4 WEEKS
     Route: 048
     Dates: start: 20060619, end: 20060716
  4. SUTENT [Suspect]
     Dosage: UNK, NO TREATMENT
     Dates: start: 20060828, end: 20060910
  5. SUTENT [Suspect]
     Dosage: 37.5 MG, QD
     Route: 048
     Dates: start: 20060911, end: 20061008
  6. SUTENT [Suspect]
     Dosage: UNK, NO TREATMENT
     Dates: start: 20061009, end: 20061022
  7. SUTENT [Suspect]
     Dosage: 50 MG, QD TIMES 4 WEEKS
     Dates: start: 20060731, end: 20060827
  8. SUTENT [Suspect]
     Dosage: UNK, NO TREATMENT
     Dates: start: 20060716, end: 20060731
  9. PLAVIX [Concomitant]
  10. VERPAMIL [Concomitant]
  11. ISORDIL [Concomitant]
  12. NU-IRON [Concomitant]
  13. ALDACTONE [Concomitant]
  14. ASPIRIN [Concomitant]
  15. ENTERIC ASPIRIN [Concomitant]
  16. HYDROCHLOROTHIAZIDE [Concomitant]
  17. HYTRIN [Concomitant]
  18. ATIVAN [Concomitant]
  19. COMPAZINE [Concomitant]
  20. ANTICOAGULANTS [Concomitant]

REACTIONS (20)
  - ABDOMINAL DISTENSION [None]
  - ANOREXIA [None]
  - BLISTER [None]
  - BLOOD CREATININE INCREASED [None]
  - BLOOD PRESSURE DECREASED [None]
  - BURNING SENSATION [None]
  - DISEASE RECURRENCE [None]
  - DRUG INEFFECTIVE [None]
  - DRUG INTOLERANCE [None]
  - DYSPNOEA [None]
  - GASTRIC HAEMORRHAGE [None]
  - GASTROINTESTINAL STROMAL TUMOUR [None]
  - HAEMOGLOBIN DECREASED [None]
  - MALAISE [None]
  - NAUSEA [None]
  - NO THERAPEUTIC RESPONSE [None]
  - PALMAR-PLANTAR ERYTHRODYSAESTHESIA SYNDROME [None]
  - PULMONARY CAVITATION [None]
  - PULMONARY EMBOLISM [None]
  - SKIN EXFOLIATION [None]
